FAERS Safety Report 13915461 (Version 1)
Quarter: 2017Q3

REPORT INFORMATION
  Report Type: Spontaneous
  Country: DE (occurrence: DE)
  Receive Date: 20170829
  Receipt Date: 20170829
  Transmission Date: 20171127
  Serious: Yes (Other)
  Sender: FDA-Public Use
  Company Number: DE-TEVA-798506GER

PATIENT
  Age: 1 Day
  Sex: Female
  Weight: 2.75 kg

DRUGS (4)
  1. FOLIO FORTE [Concomitant]
     Active Substance: FOLIC ACID\VITAMINS
     Indication: PROPHYLAXIS OF NEURAL TUBE DEFECT
     Dosage: .8 MILLIGRAM DAILY;
     Route: 064
     Dates: start: 20160629, end: 20170117
  2. TAVOR (LORAZEPAM) [Suspect]
     Active Substance: LORAZEPAM
     Indication: ANXIETY DISORDER
     Dosage: 5 MILLIGRAM DAILY; DOSE REDUCTION TO 1 MG
     Route: 064
  3. IBUPROFEN. [Concomitant]
     Active Substance: IBUPROFEN
     Indication: PRODUCT USED FOR UNKNOWN INDICATION
     Route: 064
  4. SERTRALINE [Suspect]
     Active Substance: SERTRALINE HYDROCHLORIDE
     Indication: DEPRESSION
     Dosage: 200 MILLIGRAM DAILY; BEGIN OF DRUG TREATMENT NOT EXACTLY KNOWN; PERHAPS DURING THE ENTIRE PREGNANCY
     Route: 064

REACTIONS (4)
  - Hypotonia neonatal [Recovered/Resolved]
  - Tremor neonatal [Recovered/Resolved]
  - Nasal congestion [Recovered/Resolved]
  - Respiratory disorder neonatal [Recovered/Resolved]

NARRATIVE: CASE EVENT DATE: 20170117
